FAERS Safety Report 16015800 (Version 5)
Quarter: 2019Q3

REPORT INFORMATION
  Report Type: Spontaneous
  Country: US (occurrence: US)
  Receive Date: 20190228
  Receipt Date: 20190927
  Transmission Date: 20191004
  Serious: Yes (Other)
  Sender: FDA-Public Use
  Company Number: US-GLAXOSMITHKLINE-US2019GSK036332

PATIENT
  Sex: Male

DRUGS (4)
  1. PREVACID [Suspect]
     Active Substance: LANSOPRAZOLE
     Indication: PRODUCT USED FOR UNKNOWN INDICATION
     Dosage: UNK
     Route: 065
  2. PREVACID [Suspect]
     Active Substance: LANSOPRAZOLE
     Indication: PRODUCT USED FOR UNKNOWN INDICATION
     Dosage: UNK
     Route: 065
  3. LANSOPRAZOLE. [Suspect]
     Active Substance: LANSOPRAZOLE
     Indication: DYSPEPSIA
     Dosage: 40 MG, UNK
     Route: 065
  4. OMEPRAZOLE. [Suspect]
     Active Substance: OMEPRAZOLE
     Indication: DYSPEPSIA
     Dosage: 40 MG, UNK
     Route: 065

REACTIONS (9)
  - Renal impairment [Unknown]
  - Proteinuria [Unknown]
  - Renal failure [Not Recovered/Not Resolved]
  - Rebound effect [Unknown]
  - Hyperchlorhydria [Unknown]
  - Dyspnoea [Not Recovered/Not Resolved]
  - Chronic kidney disease [Unknown]
  - Swollen tongue [Not Recovered/Not Resolved]
  - Renal injury [Unknown]
